FAERS Safety Report 14629794 (Version 1)
Quarter: 2018Q1

REPORT INFORMATION
  Report Type: Spontaneous
  Country: FR (occurrence: FR)
  Receive Date: 20180313
  Receipt Date: 20180313
  Transmission Date: 20180509
  Serious: Yes (Other)
  Sender: FDA-Public Use
  Company Number: FR-MERCK KGAA-2043605

PATIENT
  Age: 53 Year
  Sex: Female

DRUGS (1)
  1. NOVOTHYROX [Suspect]
     Active Substance: LEVOTHYROXINE SODIUM
     Indication: BASEDOW^S DISEASE
     Dates: start: 201705

REACTIONS (20)
  - Balance disorder [None]
  - Amnesia [None]
  - Social avoidant behaviour [None]
  - Impatience [None]
  - Asthenia [None]
  - Fatigue [None]
  - Alopecia [None]
  - Headache [None]
  - Arthralgia [None]
  - Aggression [None]
  - Apathy [None]
  - Basophil count increased [None]
  - Suicidal ideation [None]
  - Anxiety [None]
  - Judgement impaired [None]
  - Impaired driving ability [None]
  - Loss of personal independence in daily activities [None]
  - Monocyte count increased [None]
  - Insomnia [None]
  - Feeling guilty [None]

NARRATIVE: CASE EVENT DATE: 2017
